FAERS Safety Report 9363565 (Version 2)
Quarter: 2013Q3

REPORT INFORMATION
  Report Type: Report from Study
  Country: IN (occurrence: IN)
  Receive Date: 20130624
  Receipt Date: 20130728
  Transmission Date: 20140515
  Serious: Yes (Hospitalization)
  Sender: FDA-Public Use
  Company Number: PHHO2013IN008149

PATIENT
  Age: 55 Year
  Sex: Male

DRUGS (1)
  1. CICLOSPORIN [Suspect]
     Indication: RENAL TRANSPLANT
     Dosage: 100 MG, QD
     Route: 048
     Dates: start: 20070515

REACTIONS (1)
  - Myocardial infarction [Recovered/Resolved]
